FAERS Safety Report 4440407-X (Version None)
Quarter: 2004Q3

REPORT INFORMATION
  Report Type: 
  Country: None (occurrence: None)
  Receive Date: 20040728
  Receipt Date: 20040319
  Transmission Date: 20050211
  Serious: No
  Sender: FDA-Public Use
  Company Number: USA040362644

PATIENT
  Age: 11 Year
  Sex: Male
  Weight: 33 kg

DRUGS (3)
  1. STRATTERA [Suspect]
     Indication: ATTENTION DEFICIT/HYPERACTIVITY DISORDER
     Dosage: 40 MG
     Dates: start: 20040316
  2. RITALIN LA [Concomitant]
  3. NUTROPIN [Concomitant]

REACTIONS (4)
  - FEELING ABNORMAL [None]
  - HEADACHE [None]
  - STOMACH DISCOMFORT [None]
  - VOMITING [None]
